FAERS Safety Report 15036070 (Version 2)
Quarter: 2018Q3

REPORT INFORMATION
  Report Type: Report from Study
  Country: US (occurrence: US)
  Receive Date: 20180620
  Receipt Date: 20180712
  Transmission Date: 20181010
  Serious: No
  Sender: FDA-Public Use
  Company Number: US-SA-2018SA163450

PATIENT
  Age: 47 Year
  Sex: Female

DRUGS (1)
  1. ALEMTUZUMAB [Suspect]
     Active Substance: ALEMTUZUMAB
     Indication: RELAPSING-REMITTING MULTIPLE SCLEROSIS
     Dosage: 12 MG, QD
     Route: 041
     Dates: start: 20180514, end: 20180518

REACTIONS (3)
  - Hot flush [Not Recovered/Not Resolved]
  - Rash [Recovered/Resolved]
  - Condition aggravated [Not Recovered/Not Resolved]

NARRATIVE: CASE EVENT DATE: 201805
